FAERS Safety Report 10506852 (Version 1)
Quarter: 2014Q3

REPORT INFORMATION
  Report Type: Spontaneous
  Country: US (occurrence: None)
  Receive Date: 20140915
  Receipt Date: 20140915
  Transmission Date: 20150326
  Serious: Yes (Other)
  Sender: FDA-Public Use
  Company Number: 2014-US-005026

PATIENT
  Age: 67 Year
  Sex: Male

DRUGS (1)
  1. XYREM [Suspect]
     Active Substance: SODIUM OXYBATE
     Indication: FIBROMYALGIA
     Route: 048
     Dates: start: 200811, end: 2008

REACTIONS (6)
  - Insomnia [None]
  - Fatigue [None]
  - Condition aggravated [None]
  - Off label use [None]
  - Sleep apnoea syndrome [None]
  - Bladder disorder [None]
